FAERS Safety Report 22145064 (Version 2)
Quarter: 2023Q4

REPORT INFORMATION
  Report Type: Spontaneous
  Country: US (occurrence: US)
  Receive Date: 20230328
  Receipt Date: 20231130
  Transmission Date: 20240109
  Serious: Yes (Other)
  Sender: FDA-Public Use
  Company Number: US-JNJFOC-20230351323

PATIENT
  Age: 27 Year
  Sex: Female
  Weight: 72.6 kg

DRUGS (1)
  1. HALDOL [Suspect]
     Active Substance: HALOPERIDOL
     Indication: Schizophrenia
     Route: 065

REACTIONS (2)
  - Loss of consciousness [Unknown]
  - Aggression [Unknown]

NARRATIVE: CASE EVENT DATE: 20230309
